FAERS Safety Report 18391090 (Version 2)
Quarter: 2021Q4

REPORT INFORMATION
  Report Type: Other
  Country: CA (occurrence: None)
  Receive Date: 20201015
  Receipt Date: 20211124
  Transmission Date: 20220303
  Serious: Yes (Hospitalization, Other)
  Sender: FDA-Public Use
  Company Number: CA-ROCHE-2486751

PATIENT
  Sex: Female
  Weight: 47.6 kg

DRUGS (17)
  1. RITUXAN [Suspect]
     Active Substance: RITUXIMAB
     Indication: Rheumatoid arthritis
     Route: 042
     Dates: start: 20190710
  2. RITUXAN [Suspect]
     Active Substance: RITUXIMAB
     Dosage: ONGOING
     Route: 042
     Dates: start: 20190724
  3. SEPTRA [Concomitant]
     Active Substance: SULFAMETHOXAZOLE\TRIMETHOPRIM
     Indication: Diabetes mellitus
  4. TYLENOL [Concomitant]
     Active Substance: ACETAMINOPHEN
  5. TELMISARTAN [Concomitant]
     Active Substance: TELMISARTAN
     Indication: Diabetes mellitus
  6. METOPROLOL [Concomitant]
     Active Substance: METOPROLOL
     Indication: Diabetes mellitus
  7. PREDNISONE [Concomitant]
     Active Substance: PREDNISONE
     Indication: Diabetes mellitus
  8. SOLU-MEDROL [Concomitant]
     Active Substance: METHYLPREDNISOLONE SODIUM SUCCINATE
     Indication: Diabetes mellitus
  9. METOPROLOL [Concomitant]
     Active Substance: METOPROLOL
     Indication: Diabetes mellitus
  10. KOMBIGLYZE XR [Concomitant]
     Active Substance: METFORMIN HYDROCHLORIDE\SAXAGLIPTIN HYDROCHLORIDE
  11. HYDROCHLOROTHIAZIDE [Concomitant]
     Active Substance: HYDROCHLOROTHIAZIDE
  12. LANSOPRAZOLE [Concomitant]
     Active Substance: LANSOPRAZOLE
  13. HUMALOG [Concomitant]
     Active Substance: INSULIN LISPRO
  14. FOLIC ACID [Concomitant]
     Active Substance: FOLIC ACID
  15. BENADRYL [Concomitant]
     Active Substance: DIPHENHYDRAMINE HYDROCHLORIDE
  16. ASPIRIN [Concomitant]
     Active Substance: ASPIRIN
  17. LANSOPRAZOLE [Concomitant]
     Active Substance: LANSOPRAZOLE

REACTIONS (5)
  - Vasculitis [Unknown]
  - Pneumonia [Unknown]
  - Blood phosphorus decreased [Unknown]
  - Weight decreased [Unknown]
  - Lower respiratory tract infection [Unknown]
